FAERS Safety Report 5357398-X (Version None)
Quarter: 2007Q2

REPORT INFORMATION
  Report Type: 
  Country: None (occurrence: None)
  Receive Date: 20070612
  Receipt Date: 20070612
  Transmission Date: 20071010
  Serious: Yes (Hospitalization)
  Sender: FDA-Public Use
  Company Number: None

PATIENT
  Age: 39 Year
  Sex: Male
  Weight: 92.5338 kg

DRUGS (1)
  1. THORAZINE [Suspect]
     Indication: EPILEPSY
     Dosage: 600 MG QHS PO
     Route: 048
     Dates: start: 19930101

REACTIONS (1)
  - PRIAPISM [None]
